FAERS Safety Report 17359781 (Version 5)
Quarter: 2020Q2

REPORT INFORMATION
  Report Type: Spontaneous
  Country: HR (occurrence: HR)
  Receive Date: 20200203
  Receipt Date: 20200602
  Transmission Date: 20200713
  Serious: Yes (Other)
  Sender: FDA-Public Use
  Company Number: HR-AMGEN-HRVSP2020015784

PATIENT
  Age: 72 Year
  Sex: Male
  Weight: 95 kg

DRUGS (8)
  1. ENBREL [Suspect]
     Active Substance: ETANERCEPT
     Dosage: 50 MG, WEEKLY
     Route: 065
  2. ANDOL PRO [Concomitant]
     Dosage: 75 MG, 1X/DAY
  3. DICLODUO [Concomitant]
     Active Substance: DICLOFENAC SODIUM
     Indication: ARTHRITIS
     Dosage: 2 TABLETS EVERY 3 DAYS
  4. ENBREL [Suspect]
     Active Substance: ETANERCEPT
     Dosage: UNK
     Route: 065
  5. ENBREL [Suspect]
     Active Substance: ETANERCEPT
     Dosage: 50 MG, WEEKLY
     Route: 065
  6. PRYLAR [Concomitant]
     Indication: HYPERTENSION
     Dosage: 10/10 MG
  7. ENBREL [Suspect]
     Active Substance: ETANERCEPT
     Indication: PSORIATIC ARTHROPATHY
     Dosage: 50 MG, WEEKLY
     Route: 065
     Dates: start: 20091127
  8. VILSPOX [Concomitant]
     Active Substance: METFORMIN HYDROCHLORIDE\VILDAGLIPTIN
     Indication: DIABETES MELLITUS
     Dosage: 50/100 MG, 2X/DAY

REACTIONS (14)
  - Back injury [Unknown]
  - Vasculitis [Unknown]
  - Vision blurred [Recovering/Resolving]
  - Hypoaesthesia [Unknown]
  - Diplopia [Recovering/Resolving]
  - Condition aggravated [Unknown]
  - Cerebrovascular accident [Unknown]
  - Visual impairment [Unknown]
  - Peripheral sensorimotor neuropathy [Unknown]
  - Therapeutic product effect decreased [Unknown]
  - Retinal degeneration [Unknown]
  - Psoriasis [Unknown]
  - Ruptured cerebral aneurysm [Unknown]
  - Hernia [Unknown]

NARRATIVE: CASE EVENT DATE: 2015
